FAERS Safety Report 21020622 (Version 1)
Quarter: 2022Q2

REPORT INFORMATION
  Report Type: Spontaneous
  Country: RU (occurrence: RU)
  Receive Date: 20220629
  Receipt Date: 20220629
  Transmission Date: 20220720
  Serious: Yes (Hospitalization, Other)
  Sender: FDA-Public Use
  Company Number: RU-AMGEN-RUSSP2022106418

PATIENT
  Age: 82 Year
  Sex: Female

DRUGS (3)
  1. ROMIPLOSTIM [Suspect]
     Active Substance: ROMIPLOSTIM
     Indication: Immune thrombocytopenia
     Dosage: 250 MILLIGRAM PER DAY, QWK
     Route: 058
     Dates: start: 201908
  2. ROMIPLOSTIM [Suspect]
     Active Substance: ROMIPLOSTIM
     Dosage: 250 MILLIGRAM PER DAY, QWK
     Route: 058
     Dates: start: 201908
  3. ELTROMBOPAG [Concomitant]
     Active Substance: ELTROMBOPAG
     Indication: Immune thrombocytopenia
     Dosage: 50 MILLIGRAM PER DAY
     Dates: start: 2021

REACTIONS (5)
  - Haemorrhagic disorder [Recovered/Resolved]
  - Peripheral artery occlusion [Unknown]
  - Haematoma [Unknown]
  - Post procedural haemorrhage [Unknown]
  - Therapeutic product effect incomplete [Unknown]

NARRATIVE: CASE EVENT DATE: 20210601
